FAERS Safety Report 7098601-8 (Version None)
Quarter: 2010Q4

REPORT INFORMATION
  Report Type: 
  Country: None (occurrence: None)
  Receive Date: 20101110
  Receipt Date: 20101110
  Transmission Date: 20110411
  Serious: No
  Sender: FDA-Public Use
  Company Number: None

PATIENT
  Age: 55 Year
  Sex: Male
  Weight: 112.8 kg

DRUGS (3)
  1. LAMOTRIGINE [Suspect]
     Indication: BIPOLAR DISORDER
     Dosage: 100 MG BID PO
     Route: 048
     Dates: start: 20090925, end: 20100819
  2. LAMOTRIGINE [Suspect]
     Indication: MANIA
     Dosage: 100 MG BID PO
     Route: 048
     Dates: start: 20090925, end: 20100819
  3. LAMOTRIGINE [Suspect]
     Indication: PAIN
     Dosage: 100 MG BID PO
     Route: 048
     Dates: start: 20090925, end: 20100819

REACTIONS (2)
  - PRODUCT SUBSTITUTION ISSUE [None]
  - RASH [None]
